FAERS Safety Report 19075407 (Version 1)
Quarter: 2021Q1

REPORT INFORMATION
  Report Type: Other
  Country: US (occurrence: US)
  Receive Date: 20210330
  Receipt Date: 20210330
  Transmission Date: 20210420
  Serious: Yes (Death, Life-Threatening, Hospitalization)
  Sender: FDA-Public Use
  Company Number: US-NOSTRUM LABORATORIES, INC.-2108619

PATIENT
  Age: 76 Year
  Sex: Female

DRUGS (2)
  1. DOXYCYCLINE HYCLATE. [Suspect]
     Active Substance: DOXYCYCLINE HYCLATE
     Indication: ROCKY MOUNTAIN SPOTTED FEVER
     Route: 048
  2. SERTRALINE [Concomitant]
     Active Substance: SERTRALINE HYDROCHLORIDE
     Route: 048

REACTIONS (5)
  - Loss of consciousness [Recovered/Resolved]
  - Pancreatitis acute [Recovered/Resolved]
  - Acute kidney injury [Unknown]
  - Hypotension [Recovered/Resolved]
  - Myocardial infarction [Fatal]
